FAERS Safety Report 25388754 (Version 1)
Quarter: 2025Q2

REPORT INFORMATION
  Report Type: Spontaneous
  Country: US (occurrence: US)
  Receive Date: 20250603
  Receipt Date: 20250603
  Transmission Date: 20250716
  Serious: No
  Sender: JOHNSON AND JOHNSON
  Company Number: US-VIIV HEALTHCARE-US2025067425

PATIENT
  Age: 54 Year
  Sex: Female

DRUGS (2)
  1. RILPIVIRINE [Suspect]
     Active Substance: RILPIVIRINE
     Indication: HIV infection
     Dosage: UNK, MO
     Route: 065
     Dates: start: 20231201
  2. CABOTEGRAVIR [Suspect]
     Active Substance: CABOTEGRAVIR
     Indication: HIV infection
     Dosage: UNK, MO
     Route: 065
     Dates: start: 20231201

REACTIONS (3)
  - Pain [Recovered/Resolved]
  - Haematoma [Recovered/Resolved]
  - Blood HIV RNA increased [Recovering/Resolving]
